FAERS Safety Report 4472376-0 (Version None)
Quarter: 2004Q4

REPORT INFORMATION
  Report Type: 
  Country: None (occurrence: None)
  Receive Date: 20041007
  Receipt Date: 20040925
  Transmission Date: 20050328
  Serious: Yes (Hospitalization, Other)
  Sender: FDA-Public Use
  Company Number: 2004235503US

PATIENT
  Age: 74 Year
  Sex: Female
  Weight: 62.6 kg

DRUGS (12)
  1. CELEBREX [Suspect]
     Indication: RHEUMATOID ARTHRITIS
     Dosage: BID, ORAL;  200 MG, BID,
     Route: 048
     Dates: start: 20040501, end: 20040924
  2. CELEBREX [Suspect]
     Indication: RHEUMATOID ARTHRITIS
     Dosage: BID, ORAL;  200 MG, BID,
     Route: 048
     Dates: end: 20040924
  3. PREDNISONE [Concomitant]
  4. ASPIRIN [Concomitant]
  5. DIOVAN [Concomitant]
  6. TOPROL-XL [Concomitant]
  7. LORAZEPAM [Concomitant]
  8. PREVACID [Concomitant]
  9. BEXTRA [Concomitant]
  10. DAYPRO [Concomitant]
  11. ARTHROTEC [Concomitant]
  12. CENTRUM SILVER (RETINOL, VITAMINS NOS, VITAMIN B NOS) [Concomitant]

REACTIONS (16)
  - ABDOMINAL PAIN UPPER [None]
  - ARTERIAL BYPASS OPERATION [None]
  - CATARACT [None]
  - DIARRHOEA [None]
  - DRUG INEFFECTIVE [None]
  - FEELING ABNORMAL [None]
  - INSOMNIA [None]
  - INTERVERTEBRAL DISC DISORDER [None]
  - NAUSEA [None]
  - PAIN [None]
  - PNEUMONIA [None]
  - QUADRUPLE VESSEL BYPASS GRAFT [None]
  - SCAR [None]
  - SPINAL COLUMN STENOSIS [None]
  - STOMACH DISCOMFORT [None]
  - URINARY TRACT INFECTION [None]
